FAERS Safety Report 23695304 (Version 1)
Quarter: 2024Q2

REPORT INFORMATION
  Report Type: Spontaneous
  Country: FR (occurrence: FR)
  Receive Date: 20240402
  Receipt Date: 20240402
  Transmission Date: 20240716
  Serious: Yes (Other)
  Sender: FDA-Public Use
  Company Number: None

PATIENT
  Age: 46 Year
  Sex: Female
  Weight: 100 kg

DRUGS (1)
  1. PRAMIPEXOLE [Suspect]
     Active Substance: PRAMIPEXOLE\PRAMIPEXOLE DIHYDROCHLORIDE
     Indication: Restless legs syndrome
     Dosage: SUSTAINED-RELEASE TABLET
     Route: 048
     Dates: start: 20211001, end: 20240304

REACTIONS (5)
  - Gambling disorder [Recovered/Resolved]
  - Depression [Recovered/Resolved]
  - Compulsive shopping [Recovered/Resolved]
  - Impulse-control disorder [Recovered/Resolved]
  - Suicide attempt [Recovered/Resolved]

NARRATIVE: CASE EVENT DATE: 20221115
